FAERS Safety Report 5055413-4 (Version None)
Quarter: 2006Q3

REPORT INFORMATION
  Report Type: 
  Country: None (occurrence: None)
  Receive Date: 20060717
  Receipt Date: 20060717
  Transmission Date: 20061208
  Serious: Yes (Hospitalization)
  Sender: FDA-Public Use
  Company Number: None

PATIENT
  Age: 69 Year
  Sex: Male
  Weight: 82 kg

DRUGS (7)
  1. PROPRANOLOL [Suspect]
     Indication: HYPERTENSION
     Dosage: 20MG (?) X 1 DOSE  4/17  (STOP 3 WKS AGO, TOOK __)
     Dates: start: 20060417
  2. KLONOPIN [Concomitant]
  3. WELLBUTRIN [Concomitant]
  4. ZETIA [Concomitant]
  5. NEURONTIN [Concomitant]
  6. ASPIRIN [Concomitant]
  7. SYNTHROID [Concomitant]

REACTIONS (6)
  - BRADYCARDIA [None]
  - HYPOTENSION [None]
  - STOMACH DISCOMFORT [None]
  - SYNCOPE [None]
  - TREATMENT NONCOMPLIANCE [None]
  - TREMOR [None]
